FAERS Safety Report 16714233 (Version 1)
Quarter: 2019Q3

REPORT INFORMATION
  Report Type: Spontaneous
  Country: DE (occurrence: DE)
  Receive Date: 20190819
  Receipt Date: 20190819
  Transmission Date: 20191004
  Serious: Yes (Hospitalization)
  Sender: FDA-Public Use
  Company Number: DE-TEVA-2019-DE-1093890

PATIENT
  Age: 39 Year
  Sex: Female
  Weight: 61 kg

DRUGS (11)
  1. METOPROLOL. [Concomitant]
     Active Substance: METOPROLOL
     Dosage: 47.5 MG, 1-0-1-0, TABLETS
     Route: 048
  2. CANDESARTAN. [Suspect]
     Active Substance: CANDESARTAN
     Dosage: 16 MG, 1-0-0-0, TABLETS
     Route: 048
  3. CALCITRIOL. [Concomitant]
     Active Substance: CALCITRIOL
     Dosage: 0.25 MICROGRAM / WEEK, 1-0-0-0, TABLETS
     Route: 048
  4. VIGANTOLETTEN 1000I.E. [Concomitant]
     Active Substance: CHOLECALCIFEROL
     Dosage: 1000 IE, 0-1-0-0, TABLETS
     Route: 048
  5. MINOXIDIL. [Suspect]
     Active Substance: MINOXIDIL
     Dosage: 2.5 MG, 0.5-0-0.5-0, TABLETS
     Route: 048
  6. URAPIDIL [Suspect]
     Active Substance: URAPIDIL
     Dosage: 30 MG, 1-1-1-1, TABLETS
     Route: 048
  7. SEVELAMER [Concomitant]
     Active Substance: SEVELAMER
     Dosage: 800 MG, 2-3-2-0, TABLETS
     Route: 048
  8. OSVAREN 435MG/235MG [Concomitant]
     Dosage: 435|235 MG, 1-1-1-0, TABLETS
     Route: 048
  9. HYDROCHLOROTHIAZID/AMILORID [Suspect]
     Active Substance: AMILORIDE HYDROCHLORIDE\HYDROCHLOROTHIAZIDE
     Dosage: 5|50 MG, 1-0-0-0, TABLETS
     Route: 048
  10. FUROSEMID [Suspect]
     Active Substance: FUROSEMIDE
     Dosage: 125 MG, 1-1-0-0, TABLETS
     Route: 048
  11. AMLODIPIN [Concomitant]
     Active Substance: AMLODIPINE BESYLATE
     Dosage: 10 MG, 1-0-0-0, TABLETS
     Route: 048

REACTIONS (3)
  - Dyspnoea [Unknown]
  - Rash [Unknown]
  - Hypertension [Unknown]
